FAERS Safety Report 21935711 (Version 1)
Quarter: 2023Q1

REPORT INFORMATION
  Report Type: Spontaneous
  Country: CH (occurrence: CH)
  Receive Date: 20230201
  Receipt Date: 20230201
  Transmission Date: 20230418
  Serious: Yes (Other)
  Sender: FDA-Public Use
  Company Number: CH-VERTEX PHARMACEUTICALS-2023-001382

PATIENT
  Age: 9 Year
  Sex: Male
  Weight: 32 kg

DRUGS (1)
  1. TRIKAFTA [Suspect]
     Active Substance: ELEXACAFTOR\IVACAFTOR\TEZACAFTOR
     Indication: Cystic fibrosis
     Dosage: TWO TABLETS AM AND ONE TABLET PM
     Route: 048
     Dates: start: 20221207, end: 20221218

REACTIONS (3)
  - Pharyngitis streptococcal [Unknown]
  - Conjunctival hyperaemia [Recovering/Resolving]
  - Odynophagia [Unknown]

NARRATIVE: CASE EVENT DATE: 20221217
